FAERS Safety Report 8995486 (Version 1)
Quarter: 2013Q1

REPORT INFORMATION
  Report Type: Spontaneous
  Country: US (occurrence: US)
  Receive Date: 20130103
  Receipt Date: 20130103
  Transmission Date: 20140127
  Serious: No
  Sender: FDA-Public Use
  Company Number: US-ABBOTT-12P-163-0950488-00

PATIENT
  Sex: Female

DRUGS (1)
  1. SYNTHROID [Suspect]
     Indication: HYPOTHYROIDISM
     Dates: start: 2009, end: 201204

REACTIONS (6)
  - Migraine [Recovered/Resolved]
  - Cluster headache [Recovered/Resolved]
  - Dizziness [Recovered/Resolved]
  - Sinus headache [Recovered/Resolved]
  - Blood thyroid stimulating hormone abnormal [Unknown]
  - Fatigue [Unknown]
